FAERS Safety Report 14980506 (Version 1)
Quarter: 2018Q2

REPORT INFORMATION
  Report Type: Spontaneous
  Country: US (occurrence: US)
  Receive Date: 20180606
  Receipt Date: 20180606
  Transmission Date: 20180711
  Serious: No
  Sender: FDA-Public Use
  Company Number: US-ACTELION-A-US2018-173153

PATIENT
  Age: 84 Year
  Sex: Male

DRUGS (15)
  1. METOPROLOL. [Concomitant]
     Active Substance: METOPROLOL
  2. ALDACTONE [Concomitant]
     Active Substance: SPIRONOLACTONE
  3. LUMIGAN [Concomitant]
     Active Substance: BIMATOPROST
  4. FINASTERIDE. [Concomitant]
     Active Substance: FINASTERIDE
  5. DIGOXIN. [Concomitant]
     Active Substance: DIGOXIN
  6. AVALIDE [Concomitant]
     Active Substance: HYDROCHLOROTHIAZIDE\IRBESARTAN
  7. METFORMIN [Concomitant]
     Active Substance: METFORMIN HYDROCHLORIDE
  8. SIMVASTATIN. [Concomitant]
     Active Substance: SIMVASTATIN
  9. OPSUMIT [Suspect]
     Active Substance: MACITENTAN
     Indication: PULMONARY HYPERTENSION
     Dosage: 10 MG, QD
     Route: 048
     Dates: start: 20180518
  10. AMLODIPINE [Concomitant]
     Active Substance: AMLODIPINE BESYLATE
  11. ELIQUIS [Concomitant]
     Active Substance: APIXABAN
  12. ISOSORBIDE. [Concomitant]
     Active Substance: ISOSORBIDE
  13. GLIPIZIDE. [Concomitant]
     Active Substance: GLIPIZIDE
  14. CARDURA [Concomitant]
     Active Substance: DOXAZOSIN MESYLATE
  15. ADVAIR HFA [Concomitant]
     Active Substance: FLUTICASONE PROPIONATE\SALMETEROL XINAFOATE

REACTIONS (8)
  - Oropharyngeal pain [Not Recovered/Not Resolved]
  - Fatigue [Not Recovered/Not Resolved]
  - Cellulitis [Recovering/Resolving]
  - Headache [Not Recovered/Not Resolved]
  - Respiratory disorder [Not Recovered/Not Resolved]
  - Pain [Not Recovered/Not Resolved]
  - Erythema [Not Recovered/Not Resolved]
  - Productive cough [Not Recovered/Not Resolved]

NARRATIVE: CASE EVENT DATE: 20180526
